FAERS Safety Report 8283683-8 (Version None)
Quarter: 2012Q2

REPORT INFORMATION
  Report Type: 
  Country: None (occurrence: None)
  Receive Date: 20120413
  Receipt Date: 20120409
  Transmission Date: 20120825
  Serious: Yes (Other)
  Sender: FDA-Public Use
  Company Number: US-PFIZER INC-2012088515

PATIENT
  Age: 19 Year
  Sex: Female

DRUGS (2)
  1. TOVIAZ [Suspect]
     Dosage: 8 MG, 1X/DAY
  2. TOVIAZ [Suspect]
     Dosage: 4 MG, 2X/DAY

REACTIONS (3)
  - MULTIPLE SCLEROSIS [None]
  - POLLAKIURIA [None]
  - THERAPY REGIMEN CHANGED [None]
